FAERS Safety Report 17166966 (Version 1)
Quarter: 2019Q4

REPORT INFORMATION
  Report Type: Spontaneous
  Country: US (occurrence: US)
  Receive Date: 20191217
  Receipt Date: 20191217
  Transmission Date: 20200122
  Serious: Yes (Hospitalization)
  Sender: FDA-Public Use
  Company Number: None

PATIENT
  Sex: Female

DRUGS (12)
  1. ASPIRIN. [Concomitant]
     Active Substance: ASPIRIN
  2. CALCIFEROL [Concomitant]
  3. SYNTHROID [Concomitant]
     Active Substance: LEVOTHYROXINE SODIUM
  4. FUROSEMIDE. [Concomitant]
     Active Substance: FUROSEMIDE
  5. KTAB [Concomitant]
  6. PLAVIX [Concomitant]
     Active Substance: CLOPIDOGREL BISULFATE
  7. TOPI RAMATE [Concomitant]
  8. REPATHA [Suspect]
     Active Substance: EVOLOCUMAB
     Indication: HYPERCHOLESTEROLAEMIA
     Dosage: FREQUENCY:  Q14DAYS
     Route: 058
     Dates: start: 20170414
  9. MVI [Concomitant]
     Active Substance: VITAMINS
  10. LEVEMIR [Concomitant]
     Active Substance: INSULIN DETEMIR
  11. HUMULIN NOS [Concomitant]
     Active Substance: INSULIN HUMAN
  12. DEXCOMM GS [Concomitant]

REACTIONS (2)
  - Laboratory test abnormal [None]
  - Hospitalisation [None]
